FAERS Safety Report 9190970 (Version 1)
Quarter: 2013Q1

REPORT INFORMATION
  Report Type: Spontaneous
  Country: AU (occurrence: AU)
  Receive Date: 20130326
  Receipt Date: 20130326
  Transmission Date: 20140127
  Serious: Yes (Other)
  Sender: FDA-Public Use
  Company Number: AU-CELGENEUS-008-21660-13031896

PATIENT
  Age: 55 Year
  Sex: Female
  Weight: 71 kg

DRUGS (2)
  1. ABRAXANE [Suspect]
     Indication: BREAST CANCER METASTATIC
     Route: 065
     Dates: start: 20121102, end: 20121109
  2. GEMZAR [Concomitant]
     Indication: PRODUCT USED FOR UNKNOWN INDICATION
     Route: 065
     Dates: start: 20121102, end: 20121109

REACTIONS (1)
  - Cranial nerve disorder [Recovered/Resolved]
